FAERS Safety Report 23663763 (Version 3)
Quarter: 2024Q2

REPORT INFORMATION
  Report Type: Spontaneous
  Country: CA (occurrence: CA)
  Receive Date: 20240322
  Receipt Date: 20240409
  Transmission Date: 20240716
  Serious: Yes (Hospitalization, Other)
  Sender: FDA-Public Use
  Company Number: CA-PFIZER INC-202300303496

PATIENT
  Age: 72 Year
  Sex: Male
  Weight: 98 kg

DRUGS (9)
  1. RUXIENCE [Suspect]
     Active Substance: RITUXIMAB-PVVR
     Indication: Rheumatoid arthritis
     Dosage: 1000 MG, DAY 1 AND DAY 15
     Route: 042
     Dates: start: 20230914
  2. RUXIENCE [Suspect]
     Active Substance: RITUXIMAB-PVVR
     Dosage: 1000 MG, DAY 1 AND DAY 15
     Route: 042
     Dates: start: 20230929
  3. RUXIENCE [Suspect]
     Active Substance: RITUXIMAB-PVVR
     Dosage: 1000 MG, DAY 1 AND DAY 15 (1000 MG, DAY 1 RETREATMENT)
     Route: 042
     Dates: start: 20240319
  4. ACETAMINOPHEN [Concomitant]
     Active Substance: ACETAMINOPHEN
     Indication: Premedication
     Dosage: 650 MG
     Dates: start: 20230914, end: 20230914
  5. DIPHENHYDRAMINE [Concomitant]
     Active Substance: DIPHENHYDRAMINE
     Indication: Premedication
     Dosage: 50 MG
     Dates: start: 20230914, end: 20230914
  6. PERINDOPRIL [Concomitant]
     Active Substance: PERINDOPRIL
     Dosage: 4 MG, 1X/DAY
     Route: 065
  7. PLAQUENIL [Concomitant]
     Active Substance: HYDROXYCHLOROQUINE SULFATE
     Dosage: 1 DF, DOSAGE INFO: UNKNOWN
     Route: 065
     Dates: start: 2020
  8. SULFASALAZINE [Concomitant]
     Active Substance: SULFASALAZINE
     Dosage: 1 DF, DOSAGE INFO:  UNKNOWN
     Route: 065
     Dates: start: 202103
  9. PREDNISONE [Concomitant]
     Active Substance: PREDNISONE
     Dosage: UNK (TAPERING DOSES)
     Dates: start: 202310

REACTIONS (7)
  - Hepatic cancer recurrent [Not Recovered/Not Resolved]
  - Oesophageal haemorrhage [Recovered/Resolved]
  - Haematemesis [Recovered/Resolved]
  - Diarrhoea [Recovered/Resolved]
  - Malaise [Unknown]
  - Asthenia [Unknown]
  - Product administration error [Unknown]

NARRATIVE: CASE EVENT DATE: 20230914
